FAERS Safety Report 20746238 (Version 1)
Quarter: 2022Q2

REPORT INFORMATION
  Report Type: Other
  Country: None (occurrence: CA)
  Receive Date: 20220425
  Receipt Date: 20220425
  Transmission Date: 20220721
  Serious: Yes (Other)
  Sender: FDA-Public Use
  Company Number: CA-Jacobus Pharmaceutical Company, Inc.-2128125

PATIENT
  Age: 57 Year
  Sex: Female
  Weight: 66.364 kg

DRUGS (10)
  1. DAPSONE [Suspect]
     Active Substance: DAPSONE
     Indication: Chronic spontaneous urticaria
     Route: 048
  2. ATENOLOL [Concomitant]
     Active Substance: ATENOLOL
  3. EFFEXOR [Concomitant]
     Active Substance: VENLAFAXINE HYDROCHLORIDE
  4. ESTRADIOL [Concomitant]
     Active Substance: ESTRADIOL
  5. DOCTOR SUPER LUTEIN [Concomitant]
     Active Substance: LUTEIN
  6. PLAQUENIL [Concomitant]
     Active Substance: HYDROXYCHLOROQUINE SULFATE
  7. PREDNISONE [Concomitant]
     Active Substance: PREDNISONE
  8. PROGESTERONE [Concomitant]
     Active Substance: PROGESTERONE
  9. VALACYCLOVIR [Concomitant]
     Active Substance: VALACYCLOVIR HYDROCHLORIDE
  10. VITAMIN D [Concomitant]
     Active Substance: VITAMIN D NOS

REACTIONS (13)
  - Asthenia [Unknown]
  - Decreased appetite [Unknown]
  - Dizziness [Unknown]
  - Dyspnoea [Unknown]
  - Fatigue [Unknown]
  - Haemolytic anaemia [Unknown]
  - Headache [Unknown]
  - Hepatic enzyme increased [Unknown]
  - Jaundice [Unknown]
  - Nausea [Unknown]
  - Night sweats [Unknown]
  - Renal cyst [Unknown]
  - Splenomegaly [Unknown]
